FAERS Safety Report 6381498-9 (Version None)
Quarter: 2009Q3

REPORT INFORMATION
  Report Type: 
  Country: None (occurrence: None)
  Receive Date: 20090924
  Receipt Date: 20090914
  Transmission Date: 20100115
  Serious: Yes (Death)
  Sender: FDA-Public Use
  Company Number: AE-2009-202

PATIENT
  Age: 53 Year
  Sex: Male

DRUGS (1)
  1. METFORMIN HYDROCHLORIDE [Suspect]
     Dosage: 150 TABLETS ORAL
     Route: 048

REACTIONS (1)
  - COMPLETED SUICIDE [None]
